FAERS Safety Report 6168860-4 (Version None)
Quarter: 2009Q2

REPORT INFORMATION
  Report Type: 
  Country: None (occurrence: None)
  Receive Date: 20090413
  Receipt Date: 20090413
  Transmission Date: 20091009
  Serious: Yes (Other)
  Sender: FDA-Public Use
  Company Number: None

PATIENT
  Age: 32 Year
  Sex: Female
  Weight: 93.441 kg

DRUGS (1)
  1. ICYHOT MEDICATED NO MESS APPLICA MAXIMUM STRENGTH CHATTEM INC. [Suspect]
     Indication: MUSCLE STRAIN
     Dosage: METHOL 16% 1 TIME TOP
     Route: 061
     Dates: start: 20090411, end: 20090411

REACTIONS (4)
  - BURNING SENSATION [None]
  - ERYTHEMA [None]
  - FEELING HOT [None]
  - PAIN [None]
